FAERS Safety Report 9413746 (Version 1)
Quarter: 2013Q3

REPORT INFORMATION
  Report Type: Spontaneous
  Country: US (occurrence: US)
  Receive Date: 20130722
  Receipt Date: 20130722
  Transmission Date: 20140515
  Serious: Yes (Life-Threatening, Hospitalization, Other)
  Sender: FDA-Public Use
  Company Number: US-JNJFOC-20130710888

PATIENT
  Age: 53 Year
  Sex: Male

DRUGS (2)
  1. IBUPROFEN [Suspect]
     Route: 048
  2. IBUPROFEN [Suspect]
     Indication: ANALGESIC THERAPY
     Dosage: 35,000 MG (70 TABLETS) OVER 4 DAYS
     Route: 048

REACTIONS (29)
  - Sepsis [Recovered/Resolved]
  - Bacteraemia [Unknown]
  - Respiratory distress [Unknown]
  - Atelectasis [Unknown]
  - Meningitis staphylococcal [Unknown]
  - Pulmonary vascular disorder [Recovering/Resolving]
  - Respiratory alkalosis [Recovering/Resolving]
  - Pneumonia [Unknown]
  - Tachycardia [Unknown]
  - Hepatic steatosis [Unknown]
  - Ventricular hypokinesia [Recovering/Resolving]
  - Pleural effusion [Unknown]
  - Inappropriate antidiuretic hormone secretion [Unknown]
  - Pulseless electrical activity [Unknown]
  - Hyperhidrosis [Recovering/Resolving]
  - Joint range of motion decreased [Recovering/Resolving]
  - Back pain [Recovering/Resolving]
  - Anxiety [Recovering/Resolving]
  - Ejection fraction decreased [Recovering/Resolving]
  - Sleep apnoea syndrome [Unknown]
  - Mental status changes [Unknown]
  - Pelvic fluid collection [Unknown]
  - Malaise [Unknown]
  - Asthenia [Recovering/Resolving]
  - Hypertension [Recovered/Resolved]
  - Body temperature increased [Recovering/Resolving]
  - Renal failure [Recovering/Resolving]
  - Nausea [Recovering/Resolving]
  - Overdose [Unknown]
